FAERS Safety Report 4576924-1 (Version None)
Quarter: 2005Q1

REPORT INFORMATION
  Report Type: 
  Country: None (occurrence: None)
  Receive Date: 20050208
  Receipt Date: 20050127
  Transmission Date: 20050727
  Serious: Yes (Hospitalization)
  Sender: FDA-Public Use
  Company Number: USA-2005-0018583

PATIENT
  Sex: 0

DRUGS (1)
  1. SPECTRACEF [Suspect]

REACTIONS (2)
  - CLOSTRIDIUM COLITIS [None]
  - DEHYDRATION [None]
